FAERS Safety Report 8604328-0 (Version None)
Quarter: 2012Q3

REPORT INFORMATION
  Report Type: 
  Country: None (occurrence: None)
  Receive Date: 20120820
  Receipt Date: 20120809
  Transmission Date: 20120928
  Serious: Yes (Other)
  Sender: FDA-Public Use
  Company Number: CA-JNJFOC-20120805000

PATIENT
  Sex: Male
  Weight: 109 kg

DRUGS (2)
  1. REMICADE [Suspect]
     Indication: ANKYLOSING SPONDYLITIS
     Route: 042
     Dates: start: 20070101
  2. REMICADE [Suspect]
     Route: 042

REACTIONS (6)
  - THERAPEUTIC RESPONSE DECREASED [None]
  - NECK PAIN [None]
  - TENOSYNOVITIS [None]
  - CARPAL TUNNEL SYNDROME [None]
  - HEPATIC STEATOSIS [None]
  - CENTRAL OBESITY [None]
